FAERS Safety Report 8916968 (Version 2)
Quarter: 2013Q4

REPORT INFORMATION
  Report Type: Spontaneous
  Country: US (occurrence: US)
  Receive Date: 20121120
  Receipt Date: 20131227
  Transmission Date: 20140711
  Serious: Yes (Hospitalization)
  Sender: FDA-Public Use
  Company Number: US-ROCHE-1157460

PATIENT
  Sex: Male

DRUGS (1)
  1. ZELBORAF [Suspect]
     Indication: MALIGNANT MELANOMA
     Dosage: 4 TABS TWICE DAILY
     Route: 048
     Dates: start: 201210

REACTIONS (4)
  - Pain in jaw [Unknown]
  - Chest pain [Unknown]
  - Fatigue [Unknown]
  - Arthritis [Unknown]
